FAERS Safety Report 7822097-9 (Version None)
Quarter: 2011Q4

REPORT INFORMATION
  Report Type: 
  Country: None (occurrence: None)
  Receive Date: 20111018
  Receipt Date: 20111013
  Transmission Date: 20120403
  Serious: Yes (Death, Hospitalization, Other)
  Sender: FDA-Public Use
  Company Number: PHEH2008US03268

PATIENT
  Sex: Male

DRUGS (33)
  1. SIMVASTATIN [Concomitant]
  2. MULTI-VITAMIN [Concomitant]
  3. OMEPRAZOLE [Concomitant]
     Dosage: 20 MG, DAILY
  4. ASPIRIN [Concomitant]
  5. DILAUDID [Concomitant]
     Dosage: 8 MG, Q4H AS NEEDED
  6. RANEXA [Concomitant]
     Dosage: 1000 MG, BID
  7. PENICILLIN V POTASSIUM [Concomitant]
     Dosage: 400 MG, QID
  8. NITROGLYCERIN [Concomitant]
  9. VERAPAMIL [Concomitant]
     Dosage: 2 MG, UNK
  10. CASODEX [Concomitant]
  11. LOPRESSOR [Concomitant]
  12. LIPITOR [Concomitant]
  13. AREDIA [Suspect]
     Indication: METASTASES TO BONE
     Dosage: 90 MG, QMO
     Dates: start: 20050101
  14. VERSED [Concomitant]
  15. ZETIA [Concomitant]
  16. ISOSORBIDE MONONITRATE [Concomitant]
     Dosage: 90 MG, BID
  17. HEPARIN [Concomitant]
  18. LISINOPRIL [Concomitant]
  19. OXYCODONE HCL AND ACETAMINOPHEN [Concomitant]
  20. FUROSEMIDE [Concomitant]
     Dosage: 20 MG, DAILY
  21. OXYCONTIN [Concomitant]
     Dosage: 60 MG, BID
  22. FENTANYL [Concomitant]
  23. INTEGRILIN [Concomitant]
  24. PLAVIX [Concomitant]
  25. ASPIRIN [Concomitant]
     Dosage: 325 MG, DAILY
  26. METOPROLOL TARTRATE [Concomitant]
     Dosage: 100 MG, BID
  27. SYMBICORT [Concomitant]
  28. CELEBREX [Concomitant]
  29. LOVAZA [Concomitant]
  30. MIDAZOLAM HCL [Concomitant]
     Dosage: 2 MG, UNK
     Route: 042
  31. ZOMETA [Suspect]
  32. PROSCAR [Concomitant]
  33. LORAZEPAM [Concomitant]
     Dosage: 05 MG, Q6H AS NEEDED

REACTIONS (41)
  - PAIN [None]
  - PULMONARY CONGESTION [None]
  - OEDEMA PERIPHERAL [None]
  - FAILURE TO THRIVE [None]
  - SPINAL OSTEOARTHRITIS [None]
  - NEOPLASM MALIGNANT [None]
  - DEFORMITY [None]
  - NEUTROPHIL COUNT INCREASED [None]
  - HEPATIC STEATOSIS [None]
  - INTERVERTEBRAL DISC DEGENERATION [None]
  - INFECTION [None]
  - ANXIETY [None]
  - SUBMANDIBULAR MASS [None]
  - HYPERHIDROSIS [None]
  - NAUSEA [None]
  - ANGINA UNSTABLE [None]
  - BRONCHOSPASM [None]
  - TREMOR [None]
  - BACK PAIN [None]
  - ANAEMIA [None]
  - LYMPHOCYTE COUNT DECREASED [None]
  - DYSPHAGIA [None]
  - ASTHENIA [None]
  - SPINAL CORD COMPRESSION [None]
  - NEOPLASM PROGRESSION [None]
  - CORONARY ARTERY STENOSIS [None]
  - URINARY TRACT INFECTION [None]
  - URETHRAL PAIN [None]
  - VENOUS INSUFFICIENCY [None]
  - OSTEONECROSIS OF JAW [None]
  - EMOTIONAL DISTRESS [None]
  - RENAL FAILURE ACUTE [None]
  - PROSTATIC SPECIFIC ANTIGEN INCREASED [None]
  - ARTERIOSCLEROSIS [None]
  - BUNDLE BRANCH BLOCK RIGHT [None]
  - HYPERPARATHYROIDISM [None]
  - CONSTIPATION [None]
  - BLOOD GLUCOSE INCREASED [None]
  - SINUS TACHYCARDIA [None]
  - HYDRONEPHROSIS [None]
  - ELECTROCARDIOGRAM ST-T CHANGE [None]
